FAERS Safety Report 20900367 (Version 2)
Quarter: 2022Q2

REPORT INFORMATION
  Report Type: Spontaneous
  Country: US (occurrence: US)
  Receive Date: 20220601
  Receipt Date: 20220610
  Transmission Date: 20220720
  Serious: Yes (Death, Other)
  Sender: FDA-Public Use
  Company Number: US-ASTELLAS-2022US019441

PATIENT
  Sex: Female

DRUGS (1)
  1. PADCEV [Suspect]
     Active Substance: ENFORTUMAB VEDOTIN-EJFV
     Indication: Malignant neoplasm of renal pelvis
     Dosage: 55 MG, EVERY 4 WEEKS (ON DAYS 1, 8, 15 OF EVERY 28DAYS)
     Route: 042
     Dates: start: 20210526, end: 20220112

REACTIONS (1)
  - Malignant neoplasm progression [Fatal]
